FAERS Safety Report 6162736-4 (Version None)
Quarter: 2009Q2

REPORT INFORMATION
  Report Type: 
  Country: None (occurrence: None)
  Receive Date: 20090421
  Receipt Date: 20080417
  Transmission Date: 20091009
  Serious: No
  Sender: FDA-Public Use
  Company Number: US-ASTRAZENECA-2008UW07894

PATIENT
  Age: 80 Year
  Sex: Female
  Weight: 70.3 kg

DRUGS (3)
  1. TOPROL-XL [Suspect]
     Indication: HYPERTENSION
     Route: 048
     Dates: start: 20070101
  2. AVALIDE [Concomitant]
  3. DIOVAN [Concomitant]

REACTIONS (1)
  - ABNORMAL DREAMS [None]
